FAERS Safety Report 7261498-7 (Version None)
Quarter: 2011Q1

REPORT INFORMATION
  Report Type: 
  Country: None (occurrence: None)
  Receive Date: 20110130
  Receipt Date: 20100930
  Transmission Date: 20110831
  Serious: No
  Sender: FDA-Public Use
  Company Number: US-ABBOTT-10P-163-0675056-00

PATIENT
  Age: 69 Year
  Sex: Female

DRUGS (6)
  1. HUMIRA [Suspect]
     Indication: CROHN'S DISEASE
     Dates: start: 20100601
  2. ARICEPT [Concomitant]
     Indication: MEMORY IMPAIRMENT
  3. XIFAXEN [Concomitant]
     Indication: CROHN'S DISEASE
  4. WARFIN [Concomitant]
     Indication: CEREBROVASCULAR ACCIDENT
  5. LAMOTRIGINE [Concomitant]
     Indication: CONVULSION
  6. METOPROLOL [Concomitant]
     Indication: HEART RATE IRREGULAR

REACTIONS (1)
  - ALOPECIA [None]
